FAERS Safety Report 12340707 (Version 1)
Quarter: 2016Q2

REPORT INFORMATION
  Report Type: Spontaneous
  Country: CA (occurrence: CA)
  Receive Date: 20160506
  Receipt Date: 20160506
  Transmission Date: 20160815
  Serious: Yes (Hospitalization)
  Sender: FDA-Public Use
  Company Number: CA-JNJFOC-20160503953

PATIENT

DRUGS (2)
  1. XARELTO [Suspect]
     Active Substance: RIVAROXABAN
     Indication: PRODUCT USED FOR UNKNOWN INDICATION
     Route: 048
  2. HEPARIN [Suspect]
     Active Substance: HEPARIN SODIUM
     Indication: ANTICOAGULANT THERAPY
     Route: 058

REACTIONS (5)
  - Adrenal haemorrhage [Recovered/Resolved]
  - Adrenal insufficiency [Recovered/Resolved]
  - Deep vein thrombosis [Recovered/Resolved]
  - Anticoagulation drug level therapeutic [Recovered/Resolved]
  - Heparin-induced thrombocytopenia [Recovered/Resolved]
